FAERS Safety Report 5896127-8 (Version None)
Quarter: 2008Q3

REPORT INFORMATION
  Report Type: 
  Country: None (occurrence: None)
  Receive Date: 20080924
  Receipt Date: 20080124
  Transmission Date: 20090109
  Serious: Yes (Hospitalization)
  Sender: FDA-Public Use
  Company Number: US-ASTRAZENECA-2006UW27665

PATIENT
  Age: 39 Year
  Sex: Male
  Weight: 167.8 kg

DRUGS (24)
  1. SEROQUEL [Suspect]
     Indication: BIPOLAR DISORDER
     Route: 048
     Dates: start: 20030601, end: 20060101
  2. SEROQUEL [Suspect]
     Indication: SCHIZOPHRENIA
     Route: 048
     Dates: start: 20030601, end: 20060101
  3. SEROQUEL [Suspect]
     Indication: DEPRESSION
     Route: 048
     Dates: start: 20030601, end: 20060101
  4. ABILIFY [Concomitant]
     Route: 048
     Dates: start: 20060109
  5. RISPERDAL [Concomitant]
     Dates: start: 20060701
  6. ZYPREXA [Concomitant]
  7. LEXAPRO [Concomitant]
     Dates: start: 20060202
  8. METFORMIN HCL [Concomitant]
     Dates: start: 20060106
  9. CRESTOR [Concomitant]
     Dates: start: 20060101
  10. ENALAPRIL MALEATE [Concomitant]
     Dates: start: 20060106
  11. ENALAPRIL MALEATE [Concomitant]
     Dates: start: 20060208
  12. GLIPIZIDE [Concomitant]
     Dates: start: 20060101
  13. LANTUS U-100 INSULIN [Concomitant]
     Dates: start: 20060303
  14. NORVASC [Concomitant]
     Dates: start: 20060522
  15. WALGREENS SYR/NDL [Concomitant]
     Dosage: 29G 0.5ML U/F
     Dates: start: 20060830
  16. TESTOSTERONE [Concomitant]
     Dates: start: 20070111
  17. LOVASTATIN [Concomitant]
     Dates: start: 20070205
  18. OXYCODONE AND ACETAMINOPHEN [Concomitant]
     Dosage: 7.5-3.25 MG
     Dates: start: 20070508
  19. AMLODIPINE BESYLATE [Concomitant]
     Dates: start: 20070603
  20. CLONAZEPAM [Concomitant]
     Dates: start: 20070706
  21. BUPROPION HCL [Concomitant]
     Dates: start: 20070706
  22. DIOVAN [Concomitant]
  23. LIPITOR [Concomitant]
  24. VASOTEC [Concomitant]

REACTIONS (3)
  - DIABETES MELLITUS [None]
  - SUICIDAL IDEATION [None]
  - WEIGHT INCREASED [None]
